FAERS Safety Report 5308201-5 (Version None)
Quarter: 2007Q2

REPORT INFORMATION
  Report Type: 
  Country: None (occurrence: None)
  Receive Date: 20070426
  Receipt Date: 20070419
  Transmission Date: 20071010
  Serious: Yes (Hospitalization)
  Sender: FDA-Public Use
  Company Number: HQWYE676305MAR07

PATIENT
  Sex: Female
  Weight: 48 kg

DRUGS (6)
  1. ENBREL [Suspect]
     Indication: RHEUMATOID ARTHRITIS
     Route: 058
     Dates: start: 20061208, end: 20070207
  2. AZITHROMYCIN [Suspect]
  3. CAFFEINE/PARACETAMOL/PROMETHAZINE METHYLENE DISALICYLATE/SALICYLAMIDE [Suspect]
  4. DIGOSIN [Concomitant]
  5. CLINORIL [Concomitant]
  6. CYTOTEC [Concomitant]

REACTIONS (3)
  - HEPATIC FUNCTION ABNORMAL [None]
  - NASOPHARYNGITIS [None]
  - PEMPHIGOID [None]
